FAERS Safety Report 7469097-9 (Version None)
Quarter: 2011Q2

REPORT INFORMATION
  Report Type: 
  Country: None (occurrence: None)
  Receive Date: 20110429
  Receipt Date: 20110414
  Transmission Date: 20111010
  Serious: Yes (Hospitalization)
  Sender: FDA-Public Use
  Company Number: 11-228

PATIENT
  Age: 9 Year
  Sex: Female

DRUGS (3)
  1. ACETAMINOPHEN [Suspect]
     Indication: PYREXIA
     Dosage: ORAL
     Route: 048
  2. IBUPROFEN [Suspect]
     Indication: PYREXIA
     Dosage: ORAL
     Route: 048
  3. CEFTRIAXONE [Suspect]
     Indication: SEPSIS
     Dosage: IV
     Route: 042
     Dates: start: 20050101

REACTIONS (5)
  - URETERIC OBSTRUCTION [None]
  - POLYURIA [None]
  - RENAL PAPILLARY NECROSIS [None]
  - HYDRONEPHROSIS [None]
  - RENAL FAILURE ACUTE [None]
